FAERS Safety Report 12358184 (Version 1)
Quarter: 2016Q2

REPORT INFORMATION
  Report Type: Spontaneous
  Country: DE (occurrence: DE)
  Receive Date: 20160512
  Receipt Date: 20160512
  Transmission Date: 20160815
  Serious: Yes (Other)
  Sender: FDA-Public Use
  Company Number: DE-009507513-1604DEU017989

PATIENT
  Age: 60 Year
  Sex: Female
  Weight: 81 kg

DRUGS (10)
  1. CLOPIDOGREL [Concomitant]
     Active Substance: CLOPIDOGREL BISULFATE
     Indication: CEREBROVASCULAR ACCIDENT
     Dosage: 75 MG, QD
  2. RAMIPRIL. [Concomitant]
     Active Substance: RAMIPRIL
     Indication: HYPERTENSION
  3. RAMIPRIL COMP [Concomitant]
     Active Substance: HYDROCHLOROTHIAZIDE\RAMIPRIL
     Indication: CORONARY ARTERY DISEASE
     Dosage: 5/25MG, ONCE DAILY
  4. INEGY 10 MG/40 MG TABLETTEN [Concomitant]
     Active Substance: EZETIMIBE\SIMVASTATIN
     Indication: CORONARY ARTERY DISEASE
     Dosage: 1 TABLET, QD
     Route: 048
  5. RAMIPRIL. [Concomitant]
     Active Substance: RAMIPRIL
     Indication: CORONARY ARTERY DISEASE
     Dosage: FREQUENCY REPORTED AS ^1/2^, TOTAL DAILY DOSE 2.5MG
  6. BELOC-ZOK [Concomitant]
     Active Substance: METOPROLOL SUCCINATE
     Indication: CORONARY ARTERY DISEASE
     Dosage: FREQUENCY REPORTED AS ^1-0-1/2^, TOTAL DAILY DOSE 142.5 MG
  7. RAMIPRIL COMP [Concomitant]
     Active Substance: HYDROCHLOROTHIAZIDE\RAMIPRIL
     Indication: HYPERTENSION
  8. BELOC-ZOK [Concomitant]
     Active Substance: METOPROLOL SUCCINATE
     Indication: HYPERTENSION
  9. JANUMET [Suspect]
     Active Substance: METFORMIN HYDROCHLORIDE\SITAGLIPTIN PHOSPHATE
     Indication: TYPE 2 DIABETES MELLITUS
     Dosage: 1 DF, BID, TOTAL DAILY DOSE: 100MG/1700MG
     Route: 048
     Dates: start: 20150804, end: 20150812
  10. INEGY 10 MG/40 MG TABLETTEN [Concomitant]
     Active Substance: EZETIMIBE\SIMVASTATIN
     Indication: CEREBROVASCULAR ACCIDENT

REACTIONS (7)
  - Constipation [Recovered/Resolved]
  - Pancreatitis [Recovered/Resolved]
  - Cerebral infarction [Unknown]
  - Cervicobrachial syndrome [Unknown]
  - Nausea [Recovered/Resolved]
  - Muscle spasms [Recovered/Resolved]
  - Condition aggravated [Recovered/Resolved]

NARRATIVE: CASE EVENT DATE: 20150812
